FAERS Safety Report 10602459 (Version 2)
Quarter: 2015Q1

REPORT INFORMATION
  Report Type: Spontaneous
  Country: US (occurrence: US)
  Receive Date: 20141124
  Receipt Date: 20150123
  Transmission Date: 20150720
  Serious: No
  Sender: FDA-Public Use
  Company Number: US-009507513-1411USA009382

PATIENT
  Age: 57 Year
  Sex: Female
  Weight: 43.84 kg

DRUGS (6)
  1. CLARITIN [Suspect]
     Active Substance: LORATADINE
     Indication: SNEEZING
  2. CLARITIN [Suspect]
     Active Substance: LORATADINE
     Indication: RHINORRHOEA
  3. CLARITIN [Suspect]
     Active Substance: LORATADINE
     Indication: LACRIMATION INCREASED
  4. CLARITIN [Suspect]
     Active Substance: LORATADINE
     Indication: RESPIRATORY TRACT CONGESTION
     Dosage: 10 MG, QD
     Route: 048
     Dates: start: 20141028, end: 20141110
  5. CLARITIN [Suspect]
     Active Substance: LORATADINE
     Indication: EYE PRURITUS
  6. CLARITIN [Suspect]
     Active Substance: LORATADINE
     Indication: NASAL DISCOMFORT

REACTIONS (5)
  - Thirst [Unknown]
  - Throat irritation [Unknown]
  - Dry mouth [Unknown]
  - Drug ineffective [Unknown]
  - Condition aggravated [Recovered/Resolved]

NARRATIVE: CASE EVENT DATE: 2014
